FAERS Safety Report 9645341 (Version 1)
Quarter: 2013Q4

REPORT INFORMATION
  Report Type: Spontaneous
  Country: JP (occurrence: JP)
  Receive Date: 20131025
  Receipt Date: 20131025
  Transmission Date: 20140711
  Serious: Yes (Other)
  Sender: FDA-Public Use
  Company Number: JP-PFIZER INC-2013305389

PATIENT
  Age: 63 Year
  Sex: Male

DRUGS (4)
  1. MEDROL [Suspect]
     Indication: IMMUNOSUPPRESSANT DRUG THERAPY
     Dosage: 2 MG/DAY
     Route: 048
  2. NEORAL [Suspect]
     Indication: IMMUNOSUPPRESSANT DRUG THERAPY
     Dosage: 70 MG/DAY
     Route: 048
  3. CERTICAN [Suspect]
     Indication: IMMUNOSUPPRESSANT DRUG THERAPY
     Dosage: 0.5 MG/DAY
     Route: 048
  4. CELLCEPT [Suspect]
     Indication: IMMUNOSUPPRESSANT DRUG THERAPY
     Dosage: 1000 MG/DAY
     Route: 048

REACTIONS (1)
  - Thyroid cancer [Unknown]
